FAERS Safety Report 4673652-9 (Version None)
Quarter: 2005Q2

REPORT INFORMATION
  Report Type: 
  Country: None (occurrence: None)
  Receive Date: 20050525
  Receipt Date: 20050202
  Transmission Date: 20051028
  Serious: Yes (Death, Hospitalization, Disabling)
  Sender: FDA-Public Use
  Company Number: 2005GB00226

PATIENT
  Age: 65 Year
  Sex: Female

DRUGS (7)
  1. CRESTOR [Suspect]
     Indication: BLOOD CHOLESTEROL INCREASED
     Dosage: NOCTE
     Route: 048
     Dates: start: 20040708, end: 20041026
  2. CRESTOR [Suspect]
     Indication: HYPERTENSION
     Dosage: NOCTE
     Route: 048
     Dates: start: 20040708, end: 20041026
  3. DILTIAZEM [Concomitant]
     Route: 048
  4. PERINDOPRIL [Concomitant]
     Route: 048
  5. LANSOPRAZOLE [Concomitant]
     Route: 048
  6. BECONASE [Concomitant]
     Route: 055
  7. VENTOLIN [Concomitant]
     Route: 055

REACTIONS (5)
  - ALANINE AMINOTRANSFERASE INCREASED [None]
  - BLOOD ALKALINE PHOSPHATASE INCREASED [None]
  - BLOOD BILIRUBIN INCREASED [None]
  - HEPATOCELLULAR DAMAGE [None]
  - JAUNDICE [None]
